FAERS Safety Report 5274207-8 (Version None)
Quarter: 2007Q1

REPORT INFORMATION
  Report Type: 
  Country: None (occurrence: None)
  Receive Date: 20070323
  Receipt Date: 20070316
  Transmission Date: 20070707
  Serious: Yes (Other)
  Sender: FDA-Public Use
  Company Number: CL-BOEHRINGER INGELHEIM GMBH, GERMANY-2007-DE-01616GD

PATIENT
  Sex: Female

DRUGS (4)
  1. FENOTEROL [Suspect]
     Route: 015
  2. PREDNISONE [Suspect]
     Route: 015
  3. TACROLIMUS [Suspect]
     Route: 015
  4. METHYLPREDNISOLONE 16MG TAB [Suspect]
     Route: 015

REACTIONS (1)
  - PREMATURE BABY [None]
